FAERS Safety Report 10959818 (Version 1)
Quarter: 2015Q1

REPORT INFORMATION
  Report Type: Spontaneous
  Country: US (occurrence: US)
  Receive Date: 20150327
  Receipt Date: 20150327
  Transmission Date: 20150721
  Serious: Yes (Other)
  Sender: FDA-Public Use
  Company Number: US-BEH-2015049914

PATIENT
  Sex: Male
  Weight: 58.1 kg

DRUGS (9)
  1. EPIPEN [Concomitant]
     Active Substance: EPINEPHRINE
  2. LIDOCAINE/PRILOCAINE [Concomitant]
  3. AMOXICILLIN. [Concomitant]
     Active Substance: AMOXICILLIN
  4. ALBUTEROL. [Concomitant]
     Active Substance: ALBUTEROL
  5. SINGULAIR [Concomitant]
     Active Substance: MONTELUKAST SODIUM
  6. LORATADINE. [Concomitant]
     Active Substance: LORATADINE
  7. DIPHENHYDRAMINE [Concomitant]
     Active Substance: DIPHENHYDRAMINE
  8. HIZENTRA [Suspect]
     Active Substance: HUMAN IMMUNOGLOBULIN G
     Indication: CONGENITAL HYPOGAMMAGLOBULINAEMIA
     Route: 058
  9. ADVAIR HFA [Concomitant]
     Active Substance: FLUTICASONE PROPIONATE\SALMETEROL XINAFOATE

REACTIONS (2)
  - Swelling face [Unknown]
  - Pneumonia [Unknown]
